FAERS Safety Report 21266571 (Version 1)
Quarter: 2022Q3

REPORT INFORMATION
  Report Type: Spontaneous
  Country: DK (occurrence: DK)
  Receive Date: 20220829
  Receipt Date: 20220829
  Transmission Date: 20221027
  Serious: Yes (Hospitalization)
  Sender: FDA-Public Use
  Company Number: None

PATIENT
  Age: 73 Year
  Sex: Female

DRUGS (2)
  1. TEGRETOL [Suspect]
     Active Substance: CARBAMAZEPINE
     Indication: Trigeminal neuralgia
     Dosage: UNK, INCREASED TO 300 MG + 300 MG + 400 MG DAILY ON 18 JUL 2022
     Route: 048
     Dates: start: 20220503
  2. VALPROATE SODIUM [Concomitant]
     Active Substance: VALPROATE SODIUM
     Indication: Pain
     Dosage: UNK
     Route: 065
     Dates: start: 20220719

REACTIONS (5)
  - Malaise [Unknown]
  - Lethargy [Unknown]
  - Hyponatraemia [Recovering/Resolving]
  - Diarrhoea [Unknown]
  - Vomiting [Unknown]

NARRATIVE: CASE EVENT DATE: 20220101
